FAERS Safety Report 7489249-1 (Version None)
Quarter: 2011Q2

REPORT INFORMATION
  Report Type: 
  Country: None (occurrence: None)
  Receive Date: 20110518
  Receipt Date: 20110509
  Transmission Date: 20111010
  Serious: Yes (Hospitalization)
  Sender: FDA-Public Use
  Company Number: US-ASTRAZENECA-2011SE21424

PATIENT
  Age: 72 Year
  Sex: Female

DRUGS (2)
  1. PLAVIX [Concomitant]
  2. NEXIUM [Suspect]
     Route: 048

REACTIONS (2)
  - COLON NEOPLASM [None]
  - HOSPITALISATION [None]
